FAERS Safety Report 14670558 (Version 1)
Quarter: 2018Q1

REPORT INFORMATION
  Report Type: Spontaneous
  Country: GB (occurrence: GB)
  Receive Date: 20180322
  Receipt Date: 20180322
  Transmission Date: 20180509
  Serious: Yes (Hospitalization)
  Sender: FDA-Public Use
  Company Number: GB-TEVA-2018-GB-873571

PATIENT
  Age: 84 Year
  Sex: Female

DRUGS (7)
  1. LORAZEPAM. [Suspect]
     Active Substance: LORAZEPAM
     Dosage: 3 MILLIGRAM DAILY; THREE TIMES DAILY AS NEEDED
     Route: 048
  2. LANTUS [Concomitant]
     Active Substance: INSULIN GLARGINE
  3. PARACETAMOL [Concomitant]
     Active Substance: ACETAMINOPHEN
  4. GLYCERYL TRINITRATE [Concomitant]
     Active Substance: NITROGLYCERIN
  5. QUETIAPINE. [Suspect]
     Active Substance: QUETIAPINE
     Dosage: 25 MILLIGRAM DAILY;
     Route: 048
  6. TRAJENTA [Concomitant]
     Active Substance: LINAGLIPTIN
  7. SALBUTAMOL [Concomitant]
     Active Substance: ALBUTEROL

REACTIONS (4)
  - Fall [Unknown]
  - Abnormal behaviour [Unknown]
  - Gait disturbance [Unknown]
  - Confusional state [Unknown]
